FAERS Safety Report 22777331 (Version 3)
Quarter: 2024Q3

REPORT INFORMATION
  Report Type: Spontaneous
  Country: US (occurrence: US)
  Receive Date: 20230802
  Receipt Date: 20240823
  Transmission Date: 20241016
  Serious: Yes (Disabling, Other)
  Sender: UCB
  Company Number: US-UCBSA-2023038418

PATIENT
  Age: 48 Year
  Sex: Female

DRUGS (13)
  1. BRIVIACT [Suspect]
     Active Substance: BRIVARACETAM
     Indication: Seizure
     Dosage: UNK
  2. BRIVIACT [Suspect]
     Active Substance: BRIVARACETAM
     Dosage: 75 MILLIGRAM, 2X/DAY (BID)
  3. CIMZIA [Suspect]
     Active Substance: CERTOLIZUMAB PEGOL
     Indication: Product used for unknown indication
     Dosage: UNK
  4. KEPPRA [Suspect]
     Active Substance: LEVETIRACETAM
     Indication: Seizure
     Dosage: 250 MILLIGRAM, 2X/DAY (BID)
  5. KEPPRA [Suspect]
     Active Substance: LEVETIRACETAM
     Dosage: 500 MILLIGRAM
  6. BENTYL [Concomitant]
     Active Substance: DICYCLOMINE HYDROCHLORIDE
     Indication: Product used for unknown indication
     Dosage: 1 DOSAGE FORM
     Route: 048
  7. REMICADE [Concomitant]
     Active Substance: INFLIXIMAB
     Indication: Rheumatoid arthritis
     Dosage: 100 MILLIGRAM (SOLUTION RECONSTITUTED INTRAVENOUS)
     Route: 042
  8. METFORMIN HYDROCHLORIDE [Concomitant]
     Active Substance: METFORMIN HYDROCHLORIDE
     Indication: Product used for unknown indication
     Dosage: 500 MILLIGRAM, 2X/DAY (BID)
     Route: 048
  9. ZOMIG [Concomitant]
     Active Substance: ZOLMITRIPTAN
     Indication: Headache
     Dosage: 5 MILLIGRAM, ONCE DAILY (QD) (SOLUTION AS DIRECTED) PRN
     Route: 045
  10. AJOVY [Concomitant]
     Active Substance: FREMANEZUMAB-VFRM
     Indication: Product used for unknown indication
     Dosage: 225 MG/1-5ML SOLUTION PREFILLED SYRINGE
     Route: 058
  11. DILANTIN [Concomitant]
     Active Substance: PHENYTOIN
     Indication: Product used for unknown indication
     Dosage: 100 MILLIGRAM, 2X/DAY (BID)
     Route: 048
  12. ESCITALOPRAM OXALATE [Concomitant]
     Active Substance: ESCITALOPRAM OXALATE
     Indication: Product used for unknown indication
     Dosage: 20 MILLIGRAM, ONCE DAILY (QD)
     Route: 048
  13. RESTORIL [Concomitant]
     Active Substance: TEMAZEPAM
     Indication: Product used for unknown indication
     Dosage: 30 MILLIGRAM, ONCE DAILY (QD)
     Route: 048

REACTIONS (9)
  - Seizure [Unknown]
  - Disability [Unknown]
  - Major depression [Unknown]
  - Migraine without aura [Recovering/Resolving]
  - Insomnia [Unknown]
  - Memory impairment [Not Recovered/Not Resolved]
  - Dizziness [Unknown]
  - Fall [Unknown]
  - Hand fracture [Unknown]

NARRATIVE: CASE EVENT DATE: 20230703
